FAERS Safety Report 7558181-7 (Version None)
Quarter: 2011Q2

REPORT INFORMATION
  Report Type: 
  Country: None (occurrence: None)
  Receive Date: 20110620
  Receipt Date: 20110607
  Transmission Date: 20111010
  Serious: Yes (Death, Hospitalization, Other)
  Sender: FDA-Public Use
  Company Number: US-ROCHE-783133

PATIENT
  Sex: Female

DRUGS (6)
  1. TEMSIROLIMUS [Suspect]
     Indication: ENDOMETRIAL CANCER
     Dosage: FREQUENCY: DAYS 1, 8, 15, 22  CYCLE 4 WKS. ADMINISTERED OVER 30 MINUTES. LAST DOSE: 22 DECEMBER 2010
     Route: 042
     Dates: start: 20100317
  2. PROCHLORPERAZINE TAB [Suspect]
     Route: 065
  3. OXYCODONE HCL [Suspect]
     Route: 065
  4. HYDROCODONE BITARTRATE + ACETAMINOPHEN [Suspect]
     Route: 065
  5. OXYCODONE HCL [Suspect]
     Route: 065
  6. BEVACIZUMAB [Suspect]
     Indication: ENDOMETRIAL CANCER
     Dosage: FREQUENCY: DAYS 1 AND 15.  CYCLE 4 WKS ADMINISTERED OVER 30-90 MINUTES.  LAST DOSE: 22 DECEMBER 2010
     Route: 042
     Dates: start: 20100307

REACTIONS (8)
  - DYSPNOEA [None]
  - ANAEMIA [None]
  - BLOOD CREATININE INCREASED [None]
  - DEATH [None]
  - ABDOMINAL INFECTION [None]
  - CONSTIPATION [None]
  - HYPOCALCAEMIA [None]
  - ABDOMINAL PAIN [None]
